FAERS Safety Report 19898587 (Version 1)
Quarter: 2021Q3

REPORT INFORMATION
  Report Type: Spontaneous
  Country: US (occurrence: US)
  Receive Date: 20210929
  Receipt Date: 20210929
  Transmission Date: 20211014
  Serious: No
  Sender: FDA-Public Use
  Company Number: US-ELI_LILLY_AND_COMPANY-US202109008088

PATIENT
  Age: 54 Year
  Sex: Male

DRUGS (2)
  1. BARICITINIB. [Suspect]
     Active Substance: BARICITINIB
     Indication: COVID-19
     Dosage: 4 MG, BID
     Route: 048
     Dates: start: 20210904, end: 20210904
  2. BARICITINIB. [Suspect]
     Active Substance: BARICITINIB
     Dosage: 4 MG, DAILY
     Route: 048
     Dates: start: 20210905, end: 20210911

REACTIONS (1)
  - Extra dose administered [Unknown]

NARRATIVE: CASE EVENT DATE: 20210904
